FAERS Safety Report 7662431-6 (Version None)
Quarter: 2011Q3

REPORT INFORMATION
  Report Type: 
  Country: None (occurrence: None)
  Receive Date: 20110805
  Receipt Date: 20101214
  Transmission Date: 20111222
  Serious: No
  Sender: FDA-Public Use
  Company Number: US-ABBOTT-10P-163-0692043-00

PATIENT
  Sex: Female
  Weight: 56.75 kg

DRUGS (4)
  1. LEXAPRO [Concomitant]
     Indication: IRRITABLE BOWEL SYNDROME
     Route: 048
  2. NORVASC [Concomitant]
     Indication: MIGRAINE
     Route: 048
  3. NIASPAN [Suspect]
     Indication: BLOOD TRIGLYCERIDES INCREASED
     Route: 048
     Dates: start: 20101201
  4. OGEN [Concomitant]
     Indication: HORMONE REPLACEMENT THERAPY
     Route: 048

REACTIONS (3)
  - NAUSEA [None]
  - ABDOMINAL PAIN [None]
  - MIGRAINE [None]
